FAERS Safety Report 5618735-1 (Version None)
Quarter: 2008Q1

REPORT INFORMATION
  Report Type: 
  Country: None (occurrence: None)
  Receive Date: 20080205
  Receipt Date: 20080122
  Transmission Date: 20080703
  Serious: Yes (Hospitalization)
  Sender: FDA-Public Use
  Company Number: 2007BI019867

PATIENT
  Age: 65 Year
  Sex: Female

DRUGS (16)
  1. AVONEX [Suspect]
     Indication: MULTIPLE SCLEROSIS
     Dosage: 30 UG; QW; IM
     Route: 030
     Dates: start: 19960101
  2. CARBAMAZEPINE [Concomitant]
  3. EFFEXOR [Concomitant]
  4. LIPITOR [Concomitant]
  5. LISINOPRIL [Concomitant]
  6. OMEGA 3 FISH OIL [Concomitant]
  7. MULTI-VITAMIN [Concomitant]
  8. ASPIRIN [Concomitant]
  9. TYLENOL (CAPLET) [Concomitant]
  10. TRIAMCINOLONE [Concomitant]
  11. OXYBUTYNIN CHLORIDE [Concomitant]
  12. CALCIUM [Concomitant]
  13. VITAMIN D [Concomitant]
  14. TEGRETOL [Concomitant]
  15. SENOKOT [Concomitant]
  16. HYDROCHLOROTHIAZIDE [Concomitant]

REACTIONS (27)
  - ABDOMINAL PAIN [None]
  - ALANINE AMINOTRANSFERASE INCREASED [None]
  - ASPARTATE AMINOTRANSFERASE INCREASED [None]
  - ASTHENIA [None]
  - BLOOD CHLORIDE DECREASED [None]
  - BLOOD SODIUM DECREASED [None]
  - CHEST PAIN [None]
  - COLITIS [None]
  - CONSTIPATION [None]
  - CYSTITIS ESCHERICHIA [None]
  - CYSTITIS PSEUDOMONAL [None]
  - DIARRHOEA [None]
  - DIZZINESS [None]
  - FALL [None]
  - FLUID INTAKE REDUCED [None]
  - GLUCOSE TOLERANCE IMPAIRED [None]
  - HYPOACUSIS [None]
  - HYPOAESTHESIA FACIAL [None]
  - LOWER GASTROINTESTINAL HAEMORRHAGE [None]
  - MULTIPLE SCLEROSIS [None]
  - MUSCULAR WEAKNESS [None]
  - NAUSEA [None]
  - NEUROGENIC BLADDER [None]
  - OEDEMA [None]
  - PAIN IN EXTREMITY [None]
  - URINARY TRACT INFECTION [None]
  - WEIGHT DECREASED [None]
